FAERS Safety Report 20440455 (Version 1)
Quarter: 2022Q1

REPORT INFORMATION
  Report Type: Spontaneous
  Country: US (occurrence: None)
  Receive Date: 20220207
  Receipt Date: 20220207
  Transmission Date: 20220423
  Serious: No
  Sender: FDA-Public Use
  Company Number: None

PATIENT
  Age: 61 Year
  Sex: Male
  Weight: 105.69 kg

DRUGS (1)
  1. FLUTICASONE FUROATE\SALMETEROL XINAFOATE [Suspect]
     Active Substance: FLUTICASONE FUROATE\SALMETEROL XINAFOATE
     Indication: Lung disorder
     Dosage: OTHER QUANTITY : 250MCG / 50MCG;?FREQUENCY : TWICE A DAY;?
     Route: 055
     Dates: start: 20210616, end: 20211029

REACTIONS (1)
  - Chest pain [None]

NARRATIVE: CASE EVENT DATE: 20211109
